FAERS Safety Report 12272860 (Version 1)
Quarter: 2016Q2

REPORT INFORMATION
  Report Type: Spontaneous
  Country: US (occurrence: US)
  Receive Date: 20160415
  Receipt Date: 20160415
  Transmission Date: 20160815
  Serious: No
  Sender: FDA-Public Use
  Company Number: US-NOVOPROD-481602

PATIENT
  Age: 71 Year
  Sex: Male

DRUGS (1)
  1. TRESIBA [Suspect]
     Active Substance: INSULIN DEGLUDEC
     Indication: TYPE 2 DIABETES MELLITUS
     Dosage: 62 U, QD
     Route: 058
     Dates: start: 20160130

REACTIONS (6)
  - Blood glucose decreased [Unknown]
  - Dysarthria [Unknown]
  - Blood glucose increased [Unknown]
  - Hyperhidrosis [Unknown]
  - Hunger [Unknown]
  - Thirst [Unknown]

NARRATIVE: CASE EVENT DATE: 2016
